FAERS Safety Report 4722859-0 (Version None)
Quarter: 2005Q3

REPORT INFORMATION
  Report Type: 
  Country: None (occurrence: None)
  Receive Date: 20050722
  Receipt Date: 20050718
  Transmission Date: 20060218
  Serious: Yes (Life-Threatening, Other)
  Sender: FDA-Public Use
  Company Number: GB-GLAXOSMITHKLINE-B0388090A

PATIENT
  Age: 47 Year
  Sex: Male

DRUGS (4)
  1. RANITIDINE [Suspect]
     Dosage: 150MG TWICE PER DAY
     Route: 048
     Dates: start: 20050614, end: 20050622
  2. TAZOCIN [Suspect]
     Indication: INFECTION
     Dosage: 4.5G THREE TIMES PER DAY
     Route: 042
     Dates: start: 20050603, end: 20050622
  3. VANCOMYCIN [Concomitant]
     Indication: INFECTION
     Dosage: 1G TWICE PER DAY
     Route: 042
     Dates: start: 20050609, end: 20050621
  4. WARFARIN SODIUM [Concomitant]
     Indication: ANTICOAGULANT THERAPY
     Route: 048
     Dates: start: 20050614, end: 20050615

REACTIONS (2)
  - AGRANULOCYTOSIS [None]
  - NEUTROPENIA [None]
